FAERS Safety Report 26076408 (Version 1)
Quarter: 2025Q4

REPORT INFORMATION
  Report Type: Spontaneous
  Country: CN (occurrence: CN)
  Receive Date: 20251121
  Receipt Date: 20251121
  Transmission Date: 20260118
  Serious: Yes (Life-Threatening)
  Sender: FRESENIUS KABI
  Company Number: CN-FreseniusKabi-FK202515588

PATIENT
  Age: 72 Year
  Sex: Male

DRUGS (3)
  1. OMEGAVEN [Suspect]
     Active Substance: FISH OIL
     Indication: Nutritional supplementation
     Dosage: FOA: INJECTION
     Route: 041
     Dates: start: 20230505, end: 20230513
  2. Tesumin [Concomitant]
     Indication: Polyuria
     Dosage: FOA: TABLET
     Route: 048
     Dates: start: 20230505, end: 20230514
  3. Aomeixin [Concomitant]
     Indication: Gastric pH decreased
     Dosage: FOA: INJECTION
     Route: 041
     Dates: start: 20230414, end: 20230514

REACTIONS (2)
  - Hyperglycaemic hyperosmolar nonketotic syndrome [Recovering/Resolving]
  - Coma [Recovering/Resolving]

NARRATIVE: CASE EVENT DATE: 20230513
